FAERS Safety Report 8183476-6 (Version None)
Quarter: 2012Q1

REPORT INFORMATION
  Report Type: 
  Country: None (occurrence: None)
  Receive Date: 20120130
  Receipt Date: 20110818
  Transmission Date: 20120608
  Serious: Yes (Other)
  Sender: FDA-Public Use
  Company Number: 039876

PATIENT
  Age: 44 Year
  Sex: Female

DRUGS (1)
  1. KEPPRA [Suspect]
     Dosage: 500 MG BID ORAL
     Route: 048

REACTIONS (6)
  - CONVULSION [None]
  - VISION BLURRED [None]
  - SUICIDAL IDEATION [None]
  - NAUSEA [None]
  - TREATMENT NONCOMPLIANCE [None]
  - UNEVALUABLE EVENT [None]
